FAERS Safety Report 13321449 (Version 2)
Quarter: 2017Q1

REPORT INFORMATION
  Report Type: Report from Study
  Country: CZ (occurrence: CZ)
  Receive Date: 20170309
  Receipt Date: 20170315
  Transmission Date: 20170428
  Serious: Yes (Other)
  Sender: FDA-Public Use
  Company Number: PHHY2017CZ035206

PATIENT
  Age: 63 Year
  Sex: Male

DRUGS (3)
  1. GLIVEC [Suspect]
     Active Substance: IMATINIB MESYLATE
     Dosage: 600 MG, QD
     Route: 065
  2. GLIVEC [Suspect]
     Active Substance: IMATINIB MESYLATE
     Indication: PRODUCT USED FOR UNKNOWN INDICATION
     Dosage: 300 MG, QD
     Route: 065
     Dates: start: 20031128, end: 20161214
  3. ESSENTIALE FORTE [Concomitant]
     Indication: CHRONIC DISEASE
     Dosage: UNK
     Route: 065

REACTIONS (3)
  - Drug ineffective [Unknown]
  - Disease progression [Unknown]
  - Conjunctivitis [Unknown]

NARRATIVE: CASE EVENT DATE: 20161207
